FAERS Safety Report 4392645-2 (Version None)
Quarter: 2004Q2

REPORT INFORMATION
  Report Type: 
  Country: None (occurrence: None)
  Receive Date: 20040630
  Receipt Date: 20040616
  Transmission Date: 20050107
  Serious: Yes (Hospitalization)
  Sender: FDA-Public Use
  Company Number: BRO-007601

PATIENT
  Age: 62 Year
  Sex: Female

DRUGS (1)
  1. PROHANCE [Suspect]
     Indication: NUCLEAR MAGNETIC RESONANCE IMAGING
     Dosage: 15 ML
     Route: 042
     Dates: start: 20040614, end: 20040614

REACTIONS (8)
  - ASTHENIA [None]
  - BRAIN OEDEMA [None]
  - CEREBROVASCULAR ACCIDENT [None]
  - OEDEMA MUCOSAL [None]
  - PARAESTHESIA [None]
  - SPEECH DISORDER [None]
  - SWELLING FACE [None]
  - URTICARIA [None]
